FAERS Safety Report 5264231-3 (Version None)
Quarter: 2007Q1

REPORT INFORMATION
  Report Type: 
  Country: None (occurrence: None)
  Receive Date: 20070313
  Receipt Date: 20070301
  Transmission Date: 20070707
  Serious: Yes (Hospitalization, Other)
  Sender: FDA-Public Use
  Company Number: ZA-PFIZER INC-2007016949

PATIENT
  Age: 68 Year
  Sex: Male

DRUGS (7)
  1. LIPITOR [Suspect]
     Indication: HYPERCHOLESTEROLAEMIA
     Route: 048
  2. ATENOLOL [Concomitant]
     Route: 048
  3. LISINOPRIL [Concomitant]
     Route: 048
  4. ADALAT [Concomitant]
     Route: 048
  5. PLAVIX [Concomitant]
     Route: 048
  6. ANTIBIOTICS [Concomitant]
     Dates: start: 20060101
  7. CORTISONE ACETATE [Concomitant]
     Route: 048
     Dates: start: 20060101

REACTIONS (4)
  - CEREBROVASCULAR ACCIDENT [None]
  - ERECTILE DYSFUNCTION [None]
  - HYPERCHOLESTEROLAEMIA [None]
  - NASAL DISORDER [None]
